FAERS Safety Report 4767594-8 (Version None)
Quarter: 2005Q3

REPORT INFORMATION
  Report Type: 
  Country: None (occurrence: None)
  Receive Date: 20050913
  Receipt Date: 20050511
  Transmission Date: 20060218
  Serious: Yes (Hospitalization, Other)
  Sender: FDA-Public Use
  Company Number: US-MERCK-0505USA01799

PATIENT
  Age: 52 Year
  Sex: Female
  Weight: 95 kg

DRUGS (41)
  1. VIOXX [Suspect]
     Indication: ARTHRITIS
     Route: 048
     Dates: start: 19990901, end: 20031101
  2. VIOXX [Suspect]
     Route: 048
     Dates: start: 19990901, end: 20031101
  3. PATANOL [Concomitant]
     Route: 065
  4. CELEBREX [Suspect]
     Route: 065
  5. ACETAMINOPHEN AND HYDROCODONE BITARTRATE [Concomitant]
     Route: 065
  6. ACETAMINOPHEN AND PROPOXYPHENE NAPSYLATE [Concomitant]
     Route: 065
  7. TOBRADEX [Concomitant]
     Route: 065
  8. ERYTHROCIN [Concomitant]
     Route: 065
  9. VEETIDS [Concomitant]
     Route: 065
  10. ACETAMINOPHEN AND CODEINE [Concomitant]
     Route: 065
  11. NICOTROL [Concomitant]
     Route: 065
  12. ZYRTEC [Concomitant]
     Route: 065
  13. ERY-TAB [Concomitant]
     Route: 065
  14. NASONEX [Concomitant]
     Route: 065
  15. METHYLPREDNISOLONE [Concomitant]
     Route: 065
  16. PANCOF HC [Concomitant]
     Route: 065
  17. PREMARIN [Concomitant]
     Route: 065
  18. HYDROCODONE BITARTRATE [Concomitant]
     Route: 065
  19. AUGMENTIN [Concomitant]
     Route: 065
  20. ULTRACET [Concomitant]
     Route: 065
  21. [THERAPY UNSPECIFIED] [Concomitant]
     Route: 065
  22. VISICOL [Concomitant]
     Route: 065
  23. DIPHEN-ATROP [Concomitant]
     Route: 065
  24. DOCUSATE SODIUM [Concomitant]
     Route: 065
  25. IRON (UNSPECIFIED) [Concomitant]
     Route: 065
  26. AMOXICILLIN [Concomitant]
     Route: 065
  27. POTASSIUM CHLORIDE [Concomitant]
     Route: 065
  28. THERA M [Concomitant]
     Route: 065
  29. LAMISIL [Concomitant]
     Route: 065
  30. CEPHALEXIN [Concomitant]
     Route: 065
  31. DIFLUCAN [Concomitant]
     Route: 065
  32. ED-FLEX [Concomitant]
     Route: 065
  33. TOPAMAX [Concomitant]
     Route: 065
  34. CIPRO [Concomitant]
     Route: 065
  35. PENICILLIN (UNSPECIFIED) [Concomitant]
     Route: 065
  36. TEQUIN [Concomitant]
     Route: 065
  37. HYOSCYAMINE [Concomitant]
     Route: 065
  38. LOVENOX [Concomitant]
     Route: 065
  39. ALLEGRA [Concomitant]
     Route: 065
  40. BUPROPION HYDROCHLORIDE [Concomitant]
     Route: 065
  41. OXAPROZIN [Concomitant]
     Route: 065

REACTIONS (5)
  - CHEST PAIN [None]
  - JOINT INJURY [None]
  - MYOCARDIAL INFARCTION [None]
  - SYSTEMIC LUPUS ERYTHEMATOSUS [None]
  - THROMBOSIS [None]
